FAERS Safety Report 15340161 (Version 2)
Quarter: 2018Q3

REPORT INFORMATION
  Report Type: Spontaneous
  Country: KR (occurrence: KR)
  Receive Date: 20180831
  Receipt Date: 20180928
  Transmission Date: 20181010
  Serious: Yes (Hospitalization, Other)
  Sender: FDA-Public Use
  Company Number: KR-SA-2018SA231423

PATIENT
  Age: 75 Year
  Sex: Female

DRUGS (3)
  1. HUMALOG [Concomitant]
     Active Substance: INSULIN LISPRO
     Indication: DIABETES MELLITUS
     Dosage: UNK UNK, UNK
     Route: 058
  2. LANTUS SOLOSTAR [Suspect]
     Active Substance: INSULIN GLARGINE
     Indication: DIABETES MELLITUS
     Dosage: 46 TO 54 UNITS, QD
     Route: 058
  3. LANTUS SOLOSTAR [Suspect]
     Active Substance: INSULIN GLARGINE
     Dosage: 50 TO 54 UNITS, QD
     Route: 058
     Dates: start: 2015

REACTIONS (5)
  - Hyperglycaemia [Recovered/Resolved]
  - Diabetic retinopathy [Not Recovered/Not Resolved]
  - Cataract [Unknown]
  - Wrong schedule [Unknown]
  - Cataract [Unknown]

NARRATIVE: CASE EVENT DATE: 2016
